FAERS Safety Report 4385711-9 (Version None)
Quarter: 2004Q2

REPORT INFORMATION
  Report Type: 
  Country: None (occurrence: None)
  Receive Date: 20040623
  Receipt Date: 20040609
  Transmission Date: 20050107
  Serious: Yes (Death)
  Sender: FDA-Public Use
  Company Number: 2004-BP-03766RP

PATIENT
  Age: 74 Year
  Sex: Male

DRUGS (3)
  1. MICARDIS [Suspect]
     Dosage: (40 MG, 1 TAB OD)
     Route: 048
     Dates: start: 20031102
  2. AUGMENTIN [Concomitant]
  3. PREDNISONE TAB [Concomitant]

REACTIONS (4)
  - CHRONIC OBSTRUCTIVE AIRWAYS DISEASE EXACERBATED [None]
  - COR PULMONALE [None]
  - CORONARY ARTERY DISEASE [None]
  - PNEUMONIA [None]
